FAERS Safety Report 24864595 (Version 1)
Quarter: 2025Q1

REPORT INFORMATION
  Report Type: Spontaneous
  Country: CA (occurrence: CA)
  Receive Date: 20250120
  Receipt Date: 20250120
  Transmission Date: 20250408
  Serious: Yes (Hospitalization, Other)
  Sender: ACCORD
  Company Number: None

PATIENT
  Sex: Female

DRUGS (2)
  1. PROGESTERONE [Suspect]
     Active Substance: PROGESTERONE
     Indication: Product used for unknown indication
     Route: 030
  2. PROGESTERONE [Suspect]
     Active Substance: PROGESTERONE
     Indication: Product used for unknown indication
     Route: 030

REACTIONS (6)
  - Dyspnoea [Unknown]
  - Allergic reaction to excipient [Unknown]
  - Pyrexia [Unknown]
  - Eosinophilic pneumonia [Unknown]
  - Abortion spontaneous [Unknown]
  - Headache [Unknown]
